FAERS Safety Report 10926818 (Version 1)
Quarter: 2015Q1

REPORT INFORMATION
  Report Type: Spontaneous
  Country: None (occurrence: None)
  Receive Date: 20150209
  Receipt Date: 20150209
  Transmission Date: 20150721
  Serious: Yes (Other)
  Sender: FDA-Public Use
  Company Number: 2014SCPR009473

PATIENT
  Age: 53 Year
  Sex: Female

DRUGS (1)
  1. BUPROPION HCL XL [Suspect]
     Active Substance: BUPROPION HYDROCHLORIDE
     Indication: DEPRESSION
     Dosage: 1 DF, OD, ORAL
     Route: 048
     Dates: start: 201409, end: 20141015

REACTIONS (6)
  - Headache [None]
  - Depression [None]
  - Anxiety [None]
  - Product quality issue [None]
  - Somnolence [None]
  - Suicidal ideation [None]

NARRATIVE: CASE EVENT DATE: 20140922
